FAERS Safety Report 12528559 (Version 2)
Quarter: 2018Q1

REPORT INFORMATION
  Report Type: Report from Study
  Country: GR (occurrence: GR)
  Receive Date: 20160705
  Receipt Date: 20180119
  Transmission Date: 20180508
  Serious: Yes (Death, Hospitalization)
  Sender: FDA-Public Use
  Company Number: GR-PFIZER INC-2016164031

PATIENT
  Age: 70 Year
  Sex: Male
  Weight: 57 kg

DRUGS (5)
  1. TAXOL [Suspect]
     Active Substance: PACLITAXEL
     Dosage: 324 MG, UNK
     Route: 042
     Dates: start: 20160307, end: 20160307
  2. TAXOL [Suspect]
     Active Substance: PACLITAXEL
     Indication: NON-SMALL CELL LUNG CANCER
     Dosage: 200 MG/M2, UNK
     Route: 042
     Dates: start: 20160104
  3. CARBOPLATIN. [Suspect]
     Active Substance: CARBOPLATIN
     Indication: NON-SMALL CELL LUNG CANCER
     Dosage: AUC 6
     Route: 042
     Dates: start: 20160104
  4. CARBOPLATIN. [Suspect]
     Active Substance: CARBOPLATIN
     Dosage: 452 MG, UNK
     Route: 042
     Dates: start: 20160307, end: 20160307
  5. PF-06439535 [Suspect]
     Active Substance: INVESTIGATIONAL BIOSIMILARS
     Indication: NON-SMALL CELL LUNG CANCER
     Dosage: 945 MG, EVERY 21 DAYS
     Route: 042
     Dates: start: 20160307, end: 20160307

REACTIONS (1)
  - Febrile neutropenia [Fatal]

NARRATIVE: CASE EVENT DATE: 20160312
